FAERS Safety Report 24048741 (Version 2)
Quarter: 2024Q3

REPORT INFORMATION
  Report Type: Spontaneous
  Country: US (occurrence: US)
  Receive Date: 20240704
  Receipt Date: 20240720
  Transmission Date: 20241017
  Serious: Yes (Death, Hospitalization)
  Sender: TEVA
  Company Number: US-TEVA-VS-3214511

PATIENT
  Age: 74 Year
  Sex: Male

DRUGS (6)
  1. VORICONAZOLE [Suspect]
     Active Substance: VORICONAZOLE
     Indication: Aspergillus infection
     Route: 065
  2. MEROPENEM [Suspect]
     Active Substance: MEROPENEM
     Indication: Stenotrophomonas infection
     Route: 065
  3. CEFTAZIDIME [Suspect]
     Active Substance: CEFTAZIDIME
     Indication: Stenotrophomonas infection
     Route: 065
  4. AVIBACTAM [Suspect]
     Active Substance: AVIBACTAM
     Indication: Stenotrophomonas infection
     Route: 065
  5. VANCOMYCIN [Suspect]
     Active Substance: VANCOMYCIN
     Indication: Pneumonia
     Route: 065
  6. PIPERACILLIN AND TAZOBACTAM [Suspect]
     Active Substance: PIPERACILLIN SODIUM\TAZOBACTAM SODIUM
     Indication: Pneumonia
     Route: 065

REACTIONS (1)
  - Drug ineffective [Fatal]
